FAERS Safety Report 21391035 (Version 1)
Quarter: 2022Q3

REPORT INFORMATION
  Report Type: Spontaneous
  Country: DE (occurrence: DE)
  Receive Date: 20220929
  Receipt Date: 20220929
  Transmission Date: 20221027
  Serious: Yes (Hospitalization)
  Sender: FDA-Public Use
  Company Number: DE-ADRED-07679-01

PATIENT
  Age: 77 Year
  Sex: Male

DRUGS (5)
  1. METOPROLOL [Suspect]
     Active Substance: METOPROLOL
     Indication: Product used for unknown indication
     Dosage: 95 MG, 0.5-0-0.5-0
     Route: 048
  2. ATORVASTATIN [Concomitant]
     Active Substance: ATORVASTATIN
     Indication: Product used for unknown indication
     Route: 048
  3. Cefaomega [Concomitant]
     Indication: Product used for unknown indication
     Dosage: 2-0-2-0
     Route: 048
  4. CHOLECALCIFEROL [Concomitant]
     Active Substance: CHOLECALCIFEROL
     Indication: Product used for unknown indication
     Dosage: NACH SCHEMA (ACCORDING TO SCHEME)
     Route: 048
  5. VitaminK2 [Concomitant]
     Indication: Product used for unknown indication
     Dosage: 200 MICROGRAM, 2-0-2-0
     Route: 048

REACTIONS (4)
  - Feeling hot [Unknown]
  - Tachycardia [Unknown]
  - Syncope [Unknown]
  - Dizziness [Unknown]
